FAERS Safety Report 5421192-1 (Version None)
Quarter: 2007Q3

REPORT INFORMATION
  Report Type: 
  Country: None (occurrence: None)
  Receive Date: 20070719
  Receipt Date: 20070416
  Transmission Date: 20080115
  Serious: Yes (Other)
  Sender: FDA-Public Use
  Company Number: HQWYE684019APR07

PATIENT
  Age: 92 Year
  Sex: Female

DRUGS (6)
  1. ADVIL PM [Suspect]
     Indication: INSOMNIA
     Dosage: 2 CAPLETS ONE TIME, ORAL
     Route: 048
     Dates: start: 20070301, end: 20070101
  2. ADVIL PM [Suspect]
     Indication: INSOMNIA
     Dosage: 2 CAPLETS ONE TIME, ORAL
     Route: 048
     Dates: start: 20070101, end: 20070401
  3. CARDIAC THERAPY (CARDIAC THERAPY) [Concomitant]
  4. ASPIRIN [Concomitant]
  5. LIPITOR [Concomitant]
  6. ANTIHYPERTENSIVES (ANTIHYPERTENSIVES) [Concomitant]

REACTIONS (2)
  - FEELING JITTERY [None]
  - PSYCHOMOTOR HYPERACTIVITY [None]
